FAERS Safety Report 12917397 (Version 1)
Quarter: 2016Q4

REPORT INFORMATION
  Report Type: Spontaneous
  Country: US (occurrence: US)
  Receive Date: 20161107
  Receipt Date: 20161107
  Transmission Date: 20170207
  Serious: No
  Sender: FDA-Public Use
  Company Number: US-BAYER-2016-211872

PATIENT
  Age: 3 Month
  Sex: Female
  Weight: 5.44 kg

DRUGS (1)
  1. LOTRIMIN ULTRA ANTIFUNGAL [Suspect]
     Active Substance: BUTENAFINE HYDROCHLORIDE
     Indication: RASH
     Dosage: HAS NOT BEEN USED YET

REACTIONS (1)
  - Circumstance or information capable of leading to medication error [Unknown]
